FAERS Safety Report 4748718-5 (Version None)
Quarter: 2005Q3

REPORT INFORMATION
  Report Type: 
  Country: None (occurrence: None)
  Receive Date: 20050819
  Receipt Date: 20050808
  Transmission Date: 20060218
  Serious: Yes (Other)
  Sender: FDA-Public Use
  Company Number: US-BRISTOL-MYERS SQUIBB COMPANY-13066568

PATIENT
  Sex: Male
  Weight: 150 kg

DRUGS (1)
  1. COUMADIN [Suspect]

REACTIONS (2)
  - ADVERSE DRUG REACTION [None]
  - SUICIDAL IDEATION [None]
